FAERS Safety Report 10286582 (Version 2)
Quarter: 2014Q3

REPORT INFORMATION
  Report Type: Spontaneous
  Country: GB (occurrence: None)
  Receive Date: 20140703
  Receipt Date: 20140721
  Transmission Date: 20150326
  Serious: Yes (Hospitalization, Disabling, Other)
  Sender: FDA-Public Use
  Company Number: AUR-APL-2014-06747

PATIENT
  Age: 36 Year
  Sex: Female
  Weight: 57.2 kg

DRUGS (20)
  1. TRAMADOL [Suspect]
     Active Substance: TRAMADOL
     Indication: DEPRESSION
  2. CLARITHROMYCIN (CLARITHROMYCIN) [Concomitant]
     Active Substance: CLARITHROMYCIN
  3. SERTRALINE [Suspect]
     Active Substance: SERTRALINE HYDROCHLORIDE
     Indication: DEPRESSION
     Route: 048
  4. MIRTAZAPINE. [Suspect]
     Active Substance: MIRTAZAPINE
     Indication: DEPRESSION
     Route: 048
  5. FOSTAIR (BECLOMETASONE DIPROPIONATE, FORMOTEROL FUMARATE) [Concomitant]
  6. LACTULOSE (LACTULOSE) [Concomitant]
     Active Substance: LACTULOSE
  7. SALBUTAMOL (SALBUTAMOL) [Concomitant]
     Active Substance: ALBUTEROL
  8. MIRTAZAPINE. [Suspect]
     Active Substance: MIRTAZAPINE
     Indication: ANXIETY
     Route: 048
  9. TRAMADOL [Suspect]
     Active Substance: TRAMADOL
     Indication: ANXIETY
  10. CETIRIZINE [Suspect]
     Active Substance: CETIRIZINE HYDROCHLORIDE
     Indication: ANXIETY
  11. CETIRIZINE [Suspect]
     Active Substance: CETIRIZINE HYDROCHLORIDE
     Indication: DEPRESSION
  12. ACICLOVIR (ACICLOVIR) [Concomitant]
     Active Substance: ACYCLOVIR
  13. LORAZEPAM (LORAZEPAM) [Concomitant]
     Active Substance: LORAZEPAM
  14. PARACETAMOL (PARACETAMOL) [Concomitant]
     Active Substance: ACETAMINOPHEN
  15. SERTRALINE [Suspect]
     Active Substance: SERTRALINE HYDROCHLORIDE
     Indication: ANXIETY
     Route: 048
  16. SENNA [Concomitant]
     Active Substance: SENNA LEAF\SENNOSIDES\SENNOSIDES A AND B
  17. VENLAFAXINE [Concomitant]
     Active Substance: VENLAFAXINE HYDROCHLORIDE
  18. BUCCASTEM (PROCHLORPERAZINE MALEATE) [Concomitant]
  19. CLOZAPINE (CLOZAPINE) [Concomitant]
     Active Substance: CLOZAPINE
  20. PREDNISOLONE (PREDNISOLONE) [Concomitant]
     Active Substance: PREDNISOLONE

REACTIONS (23)
  - Confusional state [None]
  - Dizziness [None]
  - Pain [None]
  - Urinary tract infection [None]
  - Paraesthesia [None]
  - Erythema [None]
  - Energy increased [None]
  - Dysarthria [None]
  - Joint stiffness [None]
  - Contusion [None]
  - Weight decreased [None]
  - Memory impairment [None]
  - Tremor [None]
  - Headache [None]
  - Loss of consciousness [None]
  - Convulsion [None]
  - Asthenia [None]
  - Feeling drunk [None]
  - Faecal incontinence [None]
  - Fall [None]
  - Sleep disorder [None]
  - Fatigue [None]
  - Visual impairment [None]
